FAERS Safety Report 13256520 (Version 1)
Quarter: 2017Q1

REPORT INFORMATION
  Report Type: Spontaneous
  Country: FR (occurrence: FR)
  Receive Date: 20170221
  Receipt Date: 20170221
  Transmission Date: 20170428
  Serious: Yes (Hospitalization, Other)
  Sender: FDA-Public Use
  Company Number: FR-PFIZER INC-2017067027

PATIENT
  Age: 55 Year
  Sex: Female

DRUGS (26)
  1. LAROXYL [Suspect]
     Active Substance: AMITRIPTYLINE
     Dosage: 3 DROPS, DAILY
     Route: 048
     Dates: start: 20161114
  2. OXYCONTIN [Suspect]
     Active Substance: OXYCODONE HYDROCHLORIDE
     Indication: NECK PAIN
     Dosage: 5 MG, 2X/DAY
     Route: 048
     Dates: start: 20161109, end: 20161110
  3. CITALOPRAM [Concomitant]
     Active Substance: CITALOPRAM HYDROBROMIDE
     Dosage: 20 MG, 2X/DAY
  4. ISENTRESS [Concomitant]
     Active Substance: RALTEGRAVIR POTASSIUM
     Indication: ANTIRETROVIRAL THERAPY
     Dosage: UNK
     Dates: start: 20161117
  5. OXYNORMORO [Suspect]
     Active Substance: OXYCODONE
     Indication: NECK PAIN
     Dosage: 5 MG, EVERY 4 HRS
     Route: 048
     Dates: start: 20161109, end: 20161113
  6. OXYNORMORO [Suspect]
     Active Substance: OXYCODONE
     Dosage: 20 MG, 6 TIMES DAILY
     Route: 048
     Dates: start: 20161119
  7. OXYCONTIN [Suspect]
     Active Substance: OXYCODONE HYDROCHLORIDE
     Dosage: 20 MG, 2X/DAY
     Route: 048
     Dates: start: 20161110
  8. IMOVANE [Concomitant]
     Active Substance: ZOPICLONE
     Dosage: 15 MG, DAILY
  9. LYSANXIA [Concomitant]
     Active Substance: PRAZEPAM
     Dosage: 10 MG, 1X/DAY
  10. PERFALGAN [Concomitant]
     Active Substance: ACETAMINOPHEN
     Dosage: 1 G, EVERY 8H
  11. SUBUTEX [Concomitant]
     Active Substance: BUPRENORPHINE HYDROCHLORIDE
     Dosage: 8 MG, 3X/DAY
  12. HYDROXYZINE [Concomitant]
     Active Substance: HYDROXYZINE HYDROCHLORIDE
     Dosage: 25 MG, 2X/DAY
     Dates: start: 20161114
  13. TRUVADA [Concomitant]
     Active Substance: EMTRICITABINE\TENOFOVIR DISOPROXIL FUMARATE
     Indication: ANTIRETROVIRAL THERAPY
     Dosage: UNK
     Dates: start: 20161117
  14. OXYCONTIN [Suspect]
     Active Substance: OXYCODONE HYDROCHLORIDE
     Dosage: 40 MG, 2X/DAY
     Route: 048
     Dates: start: 20161113, end: 20161123
  15. CODOLIPRANE [Suspect]
     Active Substance: ACETAMINOPHEN\CODEINE PHOSPHATE
     Dosage: UNK
     Route: 048
     Dates: end: 20161123
  16. OXYNORMORO [Suspect]
     Active Substance: OXYCODONE
     Dosage: 10 MG, 6 TIMES DAILY
     Route: 048
     Dates: start: 20161113
  17. OXYNORMORO [Suspect]
     Active Substance: OXYCODONE
     Dosage: 1.5 DF, SIX TIMES DAILY
     Route: 048
     Dates: start: 20161114
  18. OXYNORMORO [Suspect]
     Active Substance: OXYCODONE
     Dosage: 5 MG, SIX TIMES DAILY
     Route: 048
     Dates: start: 20161114
  19. XANAX [Suspect]
     Active Substance: ALPRAZOLAM
     Dosage: 15 MG, DAILY
     Route: 048
     Dates: end: 20161123
  20. OXYNORMORO [Suspect]
     Active Substance: OXYCODONE
     Dosage: 15 MG, SIX TIMES DAILY
     Route: 048
     Dates: start: 20161118
  21. FORTIMEL [Concomitant]
     Active Substance: DIETARY SUPPLEMENT
  22. LAROXYL [Suspect]
     Active Substance: AMITRIPTYLINE
     Dosage: 10 DROPS, DAILY
     Route: 048
     Dates: start: 20161122, end: 20161123
  23. OXYNORMORO [Suspect]
     Active Substance: OXYCODONE
     Dosage: 15 MG, 6 TIMES DAILY
     Route: 048
     Dates: start: 20161122, end: 20161123
  24. OXYCONTIN [Suspect]
     Active Substance: OXYCODONE HYDROCHLORIDE
     Dosage: 10 MG, 2X/DAY
     Route: 048
     Dates: start: 20161112, end: 20161113
  25. OMEPRAZOLE. [Concomitant]
     Active Substance: OMEPRAZOLE
     Dosage: 20 MG, 1X/DAY
  26. DUPHALAC [Concomitant]
     Active Substance: LACTULOSE
     Dosage: 1 DF, 2X/DAY

REACTIONS (9)
  - Speech disorder [Unknown]
  - Pyrexia [Unknown]
  - Disturbance in attention [Recovered/Resolved]
  - Abasia [Unknown]
  - Pneumonia aspiration [Recovered/Resolved]
  - Hypersomnia [Recovered/Resolved]
  - Overdose [Recovered/Resolved]
  - Lung consolidation [Unknown]
  - Sinus arrhythmia [Unknown]

NARRATIVE: CASE EVENT DATE: 20161123
